FAERS Safety Report 15303604 (Version 5)
Quarter: 2019Q2

REPORT INFORMATION
  Report Type: Spontaneous
  Country: US (occurrence: US)
  Receive Date: 20180821
  Receipt Date: 20190426
  Transmission Date: 20190711
  Serious: Yes (Hospitalization)
  Sender: FDA-Public Use
  Company Number: US-VIFOR (INTERNATIONAL) INC.-VIT-2018-08215

PATIENT
  Age: 61 Year
  Sex: Male

DRUGS (11)
  1. VELTASSA [Suspect]
     Active Substance: PATIROMER
     Indication: HYPERKALAEMIA
     Route: 048
     Dates: start: 20180801
  2. METFORMIN HCL [Concomitant]
     Active Substance: METFORMIN HYDROCHLORIDE
  3. CARVEDILOL. [Concomitant]
     Active Substance: CARVEDILOL
  4. LISINOPRIL. [Concomitant]
     Active Substance: LISINOPRIL
  5. BUMETANIDE. [Concomitant]
     Active Substance: BUMETANIDE
  6. VELTASSA [Suspect]
     Active Substance: PATIROMER
     Route: 048
     Dates: start: 201807
  7. STOOL SOFTENER (DOCUSATE) [Concomitant]
     Active Substance: DOCUSATE
     Indication: CONSTIPATION
  8. FERROUS SULFATE. [Concomitant]
     Active Substance: FERROUS SULFATE
  9. TAMSULOSIN HYDROCHLORIDE. [Concomitant]
     Active Substance: TAMSULOSIN HYDROCHLORIDE
  10. TOUJEO [Concomitant]
     Active Substance: INSULIN GLARGINE
  11. FOLGARD OS [Concomitant]
     Active Substance: CALCIUM\CHOLECALCIFEROL\CYANOCOBALAMIN\FOLIC ACID\MAGNESIUM\PHOSPHORUS\PYRIDOXINE\RIBOFLAVIN

REACTIONS (5)
  - Blood potassium abnormal [Unknown]
  - Diarrhoea [Unknown]
  - Hospitalisation [Unknown]
  - Constipation [Unknown]
  - Product dose omission [Unknown]

NARRATIVE: CASE EVENT DATE: 2018
